FAERS Safety Report 22610323 (Version 1)
Quarter: 2023Q2

REPORT INFORMATION
  Report Type: Spontaneous
  Country: GB (occurrence: GB)
  Receive Date: 20230616
  Receipt Date: 20230616
  Transmission Date: 20230722
  Serious: Yes (Other)
  Sender: FDA-Public Use
  Company Number: GB-MHRA-MED-202306021734125970-HSWNY

PATIENT
  Age: 23 Year

DRUGS (1)
  1. BUPRENORPHINE HYDROCHLORIDE [Suspect]
     Active Substance: BUPRENORPHINE HYDROCHLORIDE
     Indication: Drug withdrawal maintenance therapy
     Route: 048
     Dates: start: 2022, end: 2022

REACTIONS (1)
  - Hallucination, auditory [Recovered/Resolved]
